FAERS Safety Report 4302156-8 (Version None)
Quarter: 2004Q1

REPORT INFORMATION
  Report Type: 
  Country: None (occurrence: None)
  Receive Date: 20040220
  Receipt Date: 20040206
  Transmission Date: 20041129
  Serious: Yes (Death, Hospitalization, Other)
  Sender: FDA-Public Use
  Company Number: A-CH2004-04360

PATIENT
  Age: 68 Year
  Sex: Male
  Weight: 94 kg

DRUGS (13)
  1. TRACLEER [Suspect]
     Indication: PULMONARY HYPERTENSION
     Dosage: 62.5 MG, BID, ORAL
     Route: 048
     Dates: start: 20040108, end: 20040115
  2. HYDROCORTISONE [Concomitant]
  3. XANAX [Concomitant]
  4. ROCEPHIN [Concomitant]
  5. NEURONTIN [Concomitant]
  6. PLAQUENIL [Concomitant]
  7. HUMALOG [Concomitant]
  8. SINTROM [Concomitant]
  9. PRAVASTATIN SODIUM [Concomitant]
  10. DI-ANTALVIC (DEXTROPROPOXYPHENE HYDROCHLORIDE, PARACETAMOL) [Concomitant]
  11. OMIX (TAMSULOSIN HYDROCHLORIDE) [Concomitant]
  12. VFEND [Concomitant]
  13. ILOMEDIN (ILOPROST) [Concomitant]

REACTIONS (12)
  - ALANINE AMINOTRANSFERASE INCREASED [None]
  - ASCITES [None]
  - ASPARTATE AMINOTRANSFERASE INCREASED [None]
  - BLOOD ALKALINE PHOSPHATASE INCREASED [None]
  - BLOOD BILIRUBIN INCREASED [None]
  - CARDIAC FAILURE [None]
  - DYSPNOEA EXACERBATED [None]
  - GENERALISED OEDEMA [None]
  - LEFT VENTRICULAR FAILURE [None]
  - LIVER FUNCTION TEST ABNORMAL [None]
  - OEDEMA PERIPHERAL [None]
  - RIGHT VENTRICULAR FAILURE [None]
